FAERS Safety Report 13643687 (Version 1)
Quarter: 2017Q2

REPORT INFORMATION
  Report Type: Spontaneous
  Country: DE (occurrence: DE)
  Receive Date: 20170612
  Receipt Date: 20170612
  Transmission Date: 20170830
  Serious: Yes (Other)
  Sender: FDA-Public Use
  Company Number: DE-JNJFOC-20170608146

PATIENT

DRUGS (2)
  1. TRAMAL RETARD [Suspect]
     Active Substance: TRAMADOL
     Indication: PAIN
     Route: 048
  2. TOPAMAX [Interacting]
     Active Substance: TOPIRAMATE
     Indication: PAIN
     Route: 048

REACTIONS (4)
  - Petit mal epilepsy [Recovered/Resolved]
  - Drug interaction [Recovered/Resolved]
  - Waxy flexibility [Recovered/Resolved]
  - Narcolepsy [Recovered/Resolved]
